FAERS Safety Report 6628621-6 (Version None)
Quarter: 2010Q1

REPORT INFORMATION
  Report Type: 
  Country: None (occurrence: None)
  Receive Date: 20100310
  Receipt Date: 20100310
  Transmission Date: 20100710
  Serious: Yes (Other)
  Sender: FDA-Public Use
  Company Number: None

PATIENT
  Sex: Male
  Weight: 21.7727 kg

DRUGS (1)
  1. DELSYM [Suspect]
     Indication: ANTITUSSIVE THERAPY
     Dosage: 2.5 ML EVERY 12 HR BUCCAL
     Route: 002
     Dates: start: 20100305, end: 20100306

REACTIONS (4)
  - MEDICATION ERROR [None]
  - OVERDOSE [None]
  - PRODUCT QUALITY ISSUE [None]
  - SOMNOLENCE [None]
